FAERS Safety Report 7324466-2 (Version None)
Quarter: 2011Q1

REPORT INFORMATION
  Report Type: 
  Country: None (occurrence: None)
  Receive Date: 20110218
  Receipt Date: 20110210
  Transmission Date: 20110831
  Serious: Yes (Hospitalization)
  Sender: FDA-Public Use
  Company Number: 2011SP000372

PATIENT
  Age: 60 Year
  Sex: Male
  Weight: 79.4 kg

DRUGS (4)
  1. LUNESTA [Suspect]
     Indication: INSOMNIA
     Dosage: 1, 3  MG, HS, 6 MG, PRN, ORAL
     Route: 048
     Dates: start: 20080101
  2. LUNESTA [Suspect]
     Indication: INSOMNIA
     Dosage: 1, 3  MG, HS, 6 MG, PRN, ORAL
     Route: 048
     Dates: start: 20100101
  3. LUNESTA [Suspect]
     Indication: INSOMNIA
     Dosage: 1, 3  MG, HS, 6 MG, PRN, ORAL
     Route: 048
     Dates: start: 20070101, end: 20080101
  4. AMBIEN [Concomitant]

REACTIONS (4)
  - INITIAL INSOMNIA [None]
  - INTRACRANIAL PRESSURE INCREASED [None]
  - INTRACRANIAL HYPOTENSION [None]
  - DRUG TOLERANCE [None]
